FAERS Safety Report 10252392 (Version 1)
Quarter: 2014Q2

REPORT INFORMATION
  Report Type: Spontaneous
  Country: US (occurrence: US)
  Receive Date: 20140623
  Receipt Date: 20140623
  Transmission Date: 20141212
  Serious: Yes (Death, Hospitalization)
  Sender: FDA-Public Use
  Company Number: US-MYLANLABS-2014S1014298

PATIENT
  Age: 11 Year
  Sex: Female

DRUGS (7)
  1. CARBOPLATIN [Suspect]
     Indication: ASTROCYTOMA, LOW GRADE
     Dosage: CYCLICAL; 294MG (175 MG/M2)
     Route: 065
  2. CARBOPLATIN [Suspect]
     Indication: OFF LABEL USE
     Dosage: CYCLICAL; 294MG (175 MG/M2)
     Route: 065
  3. LEVOTHYROXINE SODIUM [Concomitant]
     Indication: HYPOTHYROIDISM
     Route: 065
  4. ONDANSETRON [Concomitant]
     Indication: NAUSEA
     Route: 065
  5. OMEPRAZOLE [Concomitant]
     Indication: GASTROOESOPHAGEAL REFLUX DISEASE
     Route: 065
  6. COTRIMOXAZOLE [Concomitant]
     Indication: ANTIFUNGAL PROPHYLAXIS
     Route: 065
  7. VINCRISTINE [Concomitant]
     Indication: ASTROCYTOMA, LOW GRADE
     Dosage: CYCLICAL; 2 MG
     Route: 065

REACTIONS (2)
  - Haemolytic anaemia [Fatal]
  - Multi-organ failure [Fatal]
